FAERS Safety Report 5645443-3 (Version None)
Quarter: 2008Q1

REPORT INFORMATION
  Report Type: 
  Country: None (occurrence: None)
  Receive Date: 20080229
  Receipt Date: 20070412
  Transmission Date: 20080703
  Serious: No
  Sender: FDA-Public Use
  Company Number: US-BRISTOL-MYERS SQUIBB COMPANY-13746409

PATIENT
  Age: 51 Year
  Sex: Female

DRUGS (13)
  1. TAXOL [Suspect]
  2. AMBIEN [Concomitant]
  3. HYDROCODONE BITARTRATE [Concomitant]
  4. CITALOPRAM HYDROBROMIDE [Concomitant]
  5. LORAZEPAM [Concomitant]
  6. PROCHLORPERAZINE [Concomitant]
  7. LISINOPRIL [Concomitant]
  8. NIZORAL [Concomitant]
  9. MIRACLE MOUTHWASH [Concomitant]
  10. DIAZEPAM [Concomitant]
  11. BENADRYL [Concomitant]
  12. IMODIUM [Concomitant]
  13. FLUCONAZOLE [Concomitant]

REACTIONS (1)
  - PHOTOSENSITIVITY REACTION [None]
